FAERS Safety Report 6761307-6 (Version None)
Quarter: 2010Q2

REPORT INFORMATION
  Report Type: 
  Country: None (occurrence: None)
  Receive Date: 20100608
  Receipt Date: 20100419
  Transmission Date: 20101027
  Serious: Yes (Other)
  Sender: FDA-Public Use
  Company Number: PHHY2010DE24777

PATIENT
  Age: 86 Year
  Sex: Female

DRUGS (2)
  1. EXELON [Suspect]
     Dosage: 4.6 MG/24 HOURS, UNK
     Route: 062
     Dates: end: 20100413
  2. EXELON [Suspect]
     Dosage: 9.5 MG/24 HOURS, UNK
     Route: 062
     Dates: start: 20100416, end: 20100418

REACTIONS (4)
  - COGNITIVE DISORDER [None]
  - DELIRIUM [None]
  - NAUSEA [None]
  - VOMITING [None]
